FAERS Safety Report 7799604-8 (Version None)
Quarter: 2011Q4

REPORT INFORMATION
  Report Type: 
  Country: None (occurrence: None)
  Receive Date: 20111006
  Receipt Date: 20110926
  Transmission Date: 20120403
  Serious: Yes (Other)
  Sender: FDA-Public Use
  Company Number: US-BAYER-2011-027774

PATIENT
  Age: 25 Year
  Sex: Female
  Weight: 102.4 kg

DRUGS (5)
  1. GLUCOPHAGE [Concomitant]
     Indication: POLYCYSTIC OVARIES
     Dosage: UNK
     Dates: start: 20080101
  2. LORTAB [Concomitant]
  3. MACROBID [Concomitant]
     Dosage: UNK UNK, BID
  4. YAZ [Suspect]
     Indication: CONTRACEPTION
     Dosage: UNK
     Dates: start: 20080201, end: 20091001
  5. METFORMIN HCL [Concomitant]

REACTIONS (8)
  - CHOLECYSTITIS ACUTE [None]
  - ABDOMINAL PAIN UPPER [None]
  - BILIARY COLIC [None]
  - CHOLELITHIASIS [None]
  - INJURY [None]
  - PAIN [None]
  - NAUSEA [None]
  - FEAR [None]
